FAERS Safety Report 5090981-8 (Version None)
Quarter: 2006Q3

REPORT INFORMATION
  Report Type: 
  Country: None (occurrence: None)
  Receive Date: 20060727
  Receipt Date: 20060502
  Transmission Date: 20061208
  Serious: Yes (Other)
  Sender: FDA-Public Use
  Company Number: 2006060067

PATIENT
  Sex: Female
  Weight: 48.0813 kg

DRUGS (4)
  1. LYRICA [Suspect]
     Indication: ANXIETY
     Dosage: 50 MG (50 MG, 1 IN 1 D), ORAL
     Route: 048
     Dates: start: 20060401
  2. LYRICA [Suspect]
     Indication: DEPRESSION
     Dosage: 50 MG (50 MG, 1 IN 1 D), ORAL
     Route: 048
     Dates: start: 20060401
  3. LYRICA [Suspect]
     Indication: NEUROPATHY
     Dosage: 50 MG (50 MG, 1 IN 1 D), ORAL
     Route: 048
     Dates: start: 20060401
  4. ATIVAN [Concomitant]

REACTIONS (2)
  - CONSTIPATION [None]
  - FATIGUE [None]
